FAERS Safety Report 18810017 (Version 4)
Quarter: 2021Q4

REPORT INFORMATION
  Report Type: Spontaneous
  Country: US (occurrence: US)
  Receive Date: 20210129
  Receipt Date: 20211213
  Transmission Date: 20220303
  Serious: Yes (Hospitalization, Other)
  Sender: FDA-Public Use
  Company Number: US-PFIZER INC-2020488479

PATIENT
  Age: 55 Year
  Sex: Male

DRUGS (1)
  1. XELJANZ XR [Suspect]
     Active Substance: TOFACITINIB CITRATE
     Indication: Rheumatoid arthritis
     Dosage: 11 MG, DAILY
     Route: 048
     Dates: start: 20201204, end: 202110

REACTIONS (8)
  - Pericardial effusion [Unknown]
  - Anger [Unknown]
  - Condition aggravated [Unknown]
  - Fatigue [Unknown]
  - Hepatic enzyme abnormal [Unknown]
  - Irritability [Unknown]
  - Drug ineffective [Unknown]
  - Therapeutic response unexpected [Unknown]
